FAERS Safety Report 6228616-0 (Version None)
Quarter: 2009Q2

REPORT INFORMATION
  Report Type: 
  Country: None (occurrence: None)
  Receive Date: 20090612
  Receipt Date: 20090610
  Transmission Date: 20091009
  Serious: Yes (Hospitalization)
  Sender: FDA-Public Use
  Company Number: FR-MERCK-0903FRA00088

PATIENT
  Age: 34 Year
  Sex: Female

DRUGS (1)
  1. RALTEGRAVIR POTASSIUM [Suspect]
     Indication: HIV INFECTION
     Route: 048

REACTIONS (2)
  - BREAST CANCER [None]
  - DRUG EXPOSURE DURING PREGNANCY [None]
